FAERS Safety Report 8867208 (Version 1)
Quarter: 2012Q4

REPORT INFORMATION
  Report Type: 
  Country: US (occurrence: US)
  Receive Date: 20121025
  Receipt Date: 20121025
  Transmission Date: 20130627
  Serious: No
  Sender: FDA-Public Use
  Company Number: US-AMGEN-USASP2012015542

PATIENT
  Age: 84 Year
  Sex: Female
  Weight: 58.96 kg

DRUGS (9)
  1. ENBREL [Suspect]
     Indication: PRODUCT USED FOR UNKNOWN INDICATION
     Dosage: 25 mg, 2 times/wk
  2. CARDIZEM CD [Concomitant]
     Dosage: 180 mg, UNK
  3. WARFARIN [Concomitant]
     Dosage: 3 mg, UNK
  4. METHOTREXATE [Concomitant]
     Dosage: 2.5 mg, UNK
  5. PREDNISOLONE [Concomitant]
     Dosage: 5 mg, UNK
  6. FOLIC ACID [Concomitant]
  7. OMEPRAZOLE [Concomitant]
     Dosage: 40 mg, UNK
  8. LEVOTHYROXIN [Concomitant]
     Dosage: 100 mug, UNK
  9. CITALOPRAM [Concomitant]
     Dosage: 20 mg, UNK

REACTIONS (2)
  - Lacrimation increased [Unknown]
  - Nasopharyngitis [Unknown]
